FAERS Safety Report 25836557 (Version 1)
Quarter: 2025Q3

REPORT INFORMATION
  Report Type: Spontaneous
  Country: US (occurrence: None)
  Receive Date: 20250922
  Receipt Date: 20250922
  Transmission Date: 20251020
  Serious: No
  Sender: FDA-CTU
  Company Number: None

PATIENT
  Sex: Female

DRUGS (2)
  1. AUSTEDO XR [Suspect]
     Active Substance: DEUTETRABENAZINE
     Indication: Dyskinesia
     Dosage: FREQUENCY : DAILY;?
     Route: 048
     Dates: start: 20250820
  2. INGREZZA [Suspect]
     Active Substance: VALBENAZINE DITOSYLATE

REACTIONS (3)
  - Therapy cessation [None]
  - Adverse drug reaction [None]
  - Food craving [None]
